FAERS Safety Report 6368328-6 (Version None)
Quarter: 2009Q3

REPORT INFORMATION
  Report Type: 
  Country: None (occurrence: None)
  Receive Date: 20090909
  Receipt Date: 20090519
  Transmission Date: 20100115
  Serious: No
  Sender: FDA-Public Use
  Company Number: 000867

PATIENT
  Sex: Male

DRUGS (8)
  1. ROTIGOTINE [Suspect]
     Indication: PARKINSON'S DISEASE
     Dosage: (6 MG QD TRANSDERMAL), (6 MG QD TRANSDERMAL)
     Route: 062
     Dates: start: 20071101, end: 20090106
  2. ROTIGOTINE [Suspect]
     Indication: PARKINSON'S DISEASE
     Dosage: (6 MG QD TRANSDERMAL), (6 MG QD TRANSDERMAL)
     Route: 062
     Dates: start: 20090301, end: 20090501
  3. LACTULOSE [Concomitant]
  4. MULTI-VITAMINS [Concomitant]
  5. EFFEXOR [Concomitant]
  6. LORAZEPAM [Concomitant]
  7. RANITIDINE [Concomitant]
  8. RISPERIDONE [Concomitant]

REACTIONS (5)
  - AMNESIA [None]
  - DYSARTHRIA [None]
  - MENTAL STATUS CHANGES [None]
  - SOMNOLENCE [None]
  - URINARY INCONTINENCE [None]
